FAERS Safety Report 15755040 (Version 1)
Quarter: 2018Q4

REPORT INFORMATION
  Report Type: Spontaneous
  Country: US (occurrence: US)
  Receive Date: 20181224
  Receipt Date: 20181224
  Transmission Date: 20190205
  Serious: Yes (Death, Life-Threatening, Hospitalization, Other)
  Sender: FDA-Public Use
  Company Number: US-AUROBINDO-AUR-APL-2018-059995

PATIENT
  Age: 55 Year
  Sex: Male

DRUGS (22)
  1. FLUCONAZOLE. [Concomitant]
     Active Substance: FLUCONAZOLE
     Indication: MENINGITIS CRYPTOCOCCAL
     Dosage: 400 MILLIGRAM, DAILY (CONSOLIDATION FOR TWO MONTHS)
     Route: 048
  2. FLUCONAZOLE. [Concomitant]
     Active Substance: FLUCONAZOLE
     Indication: ENCEPHALITIS
     Dosage: 200 MILLIGRAM, DAILY (MAINTENANCE)
     Route: 048
  3. ABACAVIR. [Suspect]
     Active Substance: ABACAVIR
     Indication: ACQUIRED IMMUNODEFICIENCY SYNDROME
  4. LAMIVUDINE. [Suspect]
     Active Substance: LAMIVUDINE
     Indication: ACQUIRED IMMUNODEFICIENCY SYNDROME
  5. AMPHOTERICIN B LIPID COMPLEX [Suspect]
     Active Substance: AMPHOTERICIN B
     Dosage: 6 MILLIEQUIVALENT PER KILOGRAM, DAILY (12- WEEK COURSE)
     Route: 065
  6. FLUCYTOSINE. [Concomitant]
     Active Substance: FLUCYTOSINE
     Dosage: 100 MILLIGRAM/KILOGRAM, DAILY
     Route: 065
  7. DEXAMETHASONE. [Concomitant]
     Active Substance: DEXAMETHASONE
     Indication: ENCEPHALITIS
  8. DOLUTEGRAVIR [Suspect]
     Active Substance: DOLUTEGRAVIR
     Indication: ACQUIRED IMMUNODEFICIENCY SYNDROME
  9. LAMIVUDINE. [Suspect]
     Active Substance: LAMIVUDINE
     Indication: HIV INFECTION
     Dosage: UNK
     Route: 065
  10. DEXAMETHASONE. [Concomitant]
     Active Substance: DEXAMETHASONE
     Indication: MENINGITIS CRYPTOCOCCAL
     Dosage: 4 MILLIGRAM EVERY 8 HOURS (CONSOLIDATION, TAPERED OVER SIX WEEKS)
     Route: 065
  11. VORICONAZOLE. [Concomitant]
     Active Substance: VORICONAZOLE
     Indication: MENINGITIS CRYPTOCOCCAL
     Dosage: 500 MILLIGRAM, DAILY
     Route: 065
  12. ABACAVIR. [Suspect]
     Active Substance: ABACAVIR
     Indication: HIV INFECTION
     Dosage: UNK
     Route: 065
  13. DOLUTEGRAVIR [Suspect]
     Active Substance: DOLUTEGRAVIR
     Indication: HIV INFECTION
     Dosage: UNK
     Route: 065
  14. AMPHOTERICIN B LIPID COMPLEX [Suspect]
     Active Substance: AMPHOTERICIN B
     Dosage: 6 MILLIEQUIVALENT PER KILOGRAM, DAILY (12- WEEK COURSE)
     Route: 065
  15. FLUCYTOSINE. [Concomitant]
     Active Substance: FLUCYTOSINE
     Indication: MENINGITIS CRYPTOCOCCAL
     Dosage: 100 MILLIGRAM/KILOGRAM, DAILY
     Route: 048
  16. AMPHOTERICIN B DEOXYCHOLATE [Suspect]
     Active Substance: AMPHOTERICIN B
     Indication: ENCEPHALITIS
  17. FLUCYTOSINE. [Concomitant]
     Active Substance: FLUCYTOSINE
     Indication: ENCEPHALITIS
     Dosage: 100 MILLIGRAM/KILOGRAM, DAILY
     Route: 065
  18. FLUCONAZOLE. [Concomitant]
     Active Substance: FLUCONAZOLE
     Dosage: 800 MILLIGRAM, UNK
     Route: 065
  19. AMPHOTERICIN B LIPID COMPLEX [Suspect]
     Active Substance: AMPHOTERICIN B
     Indication: MENINGITIS CRYPTOCOCCAL
     Dosage: 4 MILLIEQUIVALENT PER KILOGRAM, DAILY
     Route: 042
  20. AMPHOTERICIN B LIPID COMPLEX [Suspect]
     Active Substance: AMPHOTERICIN B
     Indication: ENCEPHALITIS
     Dosage: 3 MILLIEQUIVALENT PER KILOGRAM, DAILY
     Route: 065
  21. AMPHOTERICIN B DEOXYCHOLATE [Suspect]
     Active Substance: AMPHOTERICIN B
     Indication: MENINGITIS CRYPTOCOCCAL
     Dosage: 1 MILLIEQUIVALENT PER KILOGRAM, DAILY (WEEKLY MAINTENANCE)
     Route: 065
  22. VORICONAZOLE. [Concomitant]
     Active Substance: VORICONAZOLE
     Indication: ENCEPHALITIS

REACTIONS (10)
  - Mental status changes [Unknown]
  - Hypokalaemia [Unknown]
  - Disease recurrence [Unknown]
  - Condition aggravated [Fatal]
  - Seizure [Unknown]
  - Hydrocephalus [Unknown]
  - Mental disorder [Unknown]
  - Immune reconstitution inflammatory syndrome [Unknown]
  - Lethargy [Unknown]
  - Pyrexia [Unknown]
